FAERS Safety Report 5134285-3 (Version None)
Quarter: 2006Q4

REPORT INFORMATION
  Report Type: 
  Country: None (occurrence: None)
  Receive Date: 20061019
  Receipt Date: 20061004
  Transmission Date: 20070319
  Serious: Yes (Life-Threatening, Hospitalization, Other)
  Sender: FDA-Public Use
  Company Number: GB-2006-006123

PATIENT
  Age: 64 Year
  Sex: Female

DRUGS (6)
  1. SOTATOL (SOTATOL HYDROCHLORIDE) TABLET [Suspect]
     Indication: ATRIAL FIBRILLATION
  2. VERAPAMIL [Suspect]
     Indication: ATRIAL FIBRILLATION
     Dosage: 80 MG, 3X/DAY, ORAL
     Route: 048
  3. DIGOXIN [Suspect]
     Indication: ATRIAL FIBRILLATION
  4. WARFARIN SODIUM [Concomitant]
  5. CO-AMILOFRUSE (AMILORIDE HYDROCHLORIDE) [Concomitant]
  6. PERINDOPRIL ERBUMINE [Concomitant]

REACTIONS (23)
  - ABDOMINAL TENDERNESS [None]
  - ATRIAL FIBRILLATION [None]
  - BOWEL SOUNDS ABNORMAL [None]
  - BRADYCARDIA [None]
  - C-REACTIVE PROTEIN INCREASED [None]
  - CARDIAC FAILURE [None]
  - CARDIOACTIVE DRUG LEVEL DECREASED [None]
  - CARDIOMEGALY [None]
  - COUGH [None]
  - DEPRESSED LEVEL OF CONSCIOUSNESS [None]
  - DRUG INTERACTION POTENTIATION [None]
  - DRUG TOXICITY [None]
  - DYSPNOEA [None]
  - HAEMODIALYSIS [None]
  - HEPATIC ENZYME INCREASED [None]
  - HYPOTENSION [None]
  - INTERNATIONAL NORMALISED RATIO INCREASED [None]
  - LIVEDO RETICULARIS [None]
  - METABOLIC ACIDOSIS [None]
  - PULSE ABSENT [None]
  - RENAL FAILURE [None]
  - RESPIRATORY RATE INCREASED [None]
  - THERAPY NON-RESPONDER [None]
